FAERS Safety Report 5720189-1 (Version None)
Quarter: 2008Q2

REPORT INFORMATION
  Report Type: 
  Country: None (occurrence: None)
  Receive Date: 20080428
  Receipt Date: 20070509
  Transmission Date: 20081010
  Serious: No
  Sender: FDA-Public Use
  Company Number: US-AMGEN-US224145

PATIENT
  Sex: Female
  Weight: 73.5 kg

DRUGS (8)
  1. SENSIPAR [Suspect]
     Indication: DRUG USE FOR UNKNOWN INDICATION
     Route: 065
     Dates: start: 20070506, end: 20070507
  2. PHOSLO [Concomitant]
     Route: 065
  3. NEPHROCAPS [Concomitant]
     Route: 065
  4. OMEPRAZOLE [Concomitant]
     Route: 065
  5. NIFEDIPINE [Concomitant]
     Route: 065
  6. CLONIDINE HCL [Concomitant]
     Route: 065
  7. MEVACOR [Concomitant]
     Route: 065
  8. COLACE [Concomitant]
     Route: 065

REACTIONS (4)
  - GLOSSODYNIA [None]
  - PRESYNCOPE [None]
  - SOMNOLENCE [None]
  - TONGUE OEDEMA [None]
